FAERS Safety Report 25497344 (Version 1)
Quarter: 2025Q3

REPORT INFORMATION
  Report Type: Spontaneous
  Country: CN (occurrence: CN)
  Receive Date: 20250701
  Receipt Date: 20250701
  Transmission Date: 20251021
  Serious: Yes (Hospitalization)
  Sender: ROCHE
  Company Number: CN-ROCHE-10000322370

PATIENT
  Age: 47 Year
  Sex: Female

DRUGS (6)
  1. PERTUZUMAB [Suspect]
     Active Substance: PERTUZUMAB
     Indication: Adenocarcinoma of colon
     Route: 042
     Dates: start: 20250516, end: 20250516
  2. TRASTUZUMAB [Suspect]
     Active Substance: TRASTUZUMAB
     Indication: Adenocarcinoma of colon
     Route: 042
     Dates: start: 20250516, end: 20250516
  3. CAPECITABINE [Suspect]
     Active Substance: CAPECITABINE
     Indication: Adenocarcinoma of colon
     Route: 048
     Dates: start: 20250516, end: 20250530
  4. CAPECITABINE [Suspect]
     Active Substance: CAPECITABINE
     Route: 048
     Dates: start: 20250516, end: 20250530
  5. IRINOTECAN HYDROCHLORIDE [Suspect]
     Active Substance: IRINOTECAN HYDROCHLORIDE
     Indication: Adenocarcinoma of colon
     Route: 042
     Dates: start: 20250516, end: 20250516
  6. SODIUM CHLORIDE [Concomitant]
     Active Substance: SODIUM CHLORIDE
     Route: 042
     Dates: start: 20250516, end: 20250516

REACTIONS (2)
  - Myelosuppression [Recovering/Resolving]
  - Off label use [Unknown]

NARRATIVE: CASE EVENT DATE: 20250603
